FAERS Safety Report 26036095 (Version 1)
Quarter: 2025Q4

REPORT INFORMATION
  Report Type: Spontaneous
  Country: CO (occurrence: CO)
  Receive Date: 20251112
  Receipt Date: 20251112
  Transmission Date: 20260117
  Serious: Yes (Hospitalization)
  Sender: ROCHE
  Company Number: CO-ROCHE-10000433983

PATIENT
  Age: 77 Year
  Sex: Female
  Weight: 37 kg

DRUGS (2)
  1. ALECENSA [Suspect]
     Active Substance: ALECTINIB HYDROCHLORIDE
     Indication: Bronchial carcinoma
     Dosage: PHARMACEUTICAL FORM: ALECTINIB CAPSULE 150 MG
     Route: 048
     Dates: start: 20241001
  2. ALECENSA [Suspect]
     Active Substance: ALECTINIB HYDROCHLORIDE
     Indication: Lung neoplasm malignant

REACTIONS (1)
  - Asphyxia [Unknown]

NARRATIVE: CASE EVENT DATE: 20251105
